FAERS Safety Report 24228674 (Version 1)
Quarter: 2024Q3

REPORT INFORMATION
  Report Type: Spontaneous
  Country: US (occurrence: None)
  Receive Date: 20240819
  Receipt Date: 20240819
  Transmission Date: 20241017
  Serious: Yes (Death)
  Sender: Public
  Company Number: None

PATIENT
  Age: 66 Year
  Sex: Male
  Weight: 59 kg

DRUGS (16)
  1. MAVYRET [Suspect]
     Active Substance: GLECAPREVIR\PIBRENTASVIR
     Indication: Chronic hepatitis C
     Dosage: FREQUENCY : 3 TIMES A DAY;?
     Route: 048
     Dates: start: 20240726, end: 20240816
  2. GABAPENTIN [Concomitant]
     Active Substance: GABAPENTIN
  3. Melatonin 1mg [Concomitant]
  4. TRAZODONE HYDROCHLORIDE [Concomitant]
     Active Substance: TRAZODONE HYDROCHLORIDE
  5. ASPIRIN [Concomitant]
     Active Substance: ASPIRIN
  6. Carvedilol 6.35mg [Concomitant]
  7. Humalog 100U [Concomitant]
  8. Levothyroxine 0.075mg [Concomitant]
  9. ATORVASTATIN [Concomitant]
     Active Substance: ATORVASTATIN
  10. Metamucil powder [Concomitant]
  11. METFORMIN HYDROCHLORIDE [Concomitant]
     Active Substance: METFORMIN HYDROCHLORIDE
  12. Oxycodone 5mg IR [Concomitant]
  13. Prazosin 5mg [Concomitant]
  14. Tylenol 650mg [Concomitant]
  15. Valproate 100mg/ml inj [Concomitant]
  16. Voltaren 1% gel [Concomitant]

REACTIONS (1)
  - Death [None]

NARRATIVE: CASE EVENT DATE: 20240816
